FAERS Safety Report 16004923 (Version 1)
Quarter: 2019Q1

REPORT INFORMATION
  Report Type: Spontaneous
  Country: FR (occurrence: FR)
  Receive Date: 20190226
  Receipt Date: 20190226
  Transmission Date: 20190418
  Serious: Yes (Hospitalization)
  Sender: FDA-Public Use
  Company Number: FR-HETERO CORPORATE-HET2019FR00163

PATIENT
  Age: 34 Year
  Sex: Female

DRUGS (3)
  1. LEVETIRACETAM. [Suspect]
     Active Substance: LEVETIRACETAM
     Indication: GENERALISED TONIC-CLONIC SEIZURE
     Dosage: 500 MG, QD
     Route: 065
     Dates: start: 201710, end: 2017
  2. LAMICTAL [Suspect]
     Active Substance: LAMOTRIGINE
     Indication: GENERALISED TONIC-CLONIC SEIZURE
     Dosage: 100 MG, QD
     Route: 065
     Dates: start: 200810
  3. LAMICTAL [Suspect]
     Active Substance: LAMOTRIGINE
     Dosage: 200 MG, QD
     Route: 065

REACTIONS (1)
  - Mania [Recovered/Resolved]
